FAERS Safety Report 5054149-3 (Version None)
Quarter: 2006Q3

REPORT INFORMATION
  Report Type: 
  Country: None (occurrence: None)
  Receive Date: 20060713
  Receipt Date: 20060626
  Transmission Date: 20061208
  Serious: Yes (Hospitalization)
  Sender: FDA-Public Use
  Company Number: 2006EU001924

PATIENT
  Age: 46 Year
  Sex: Male

DRUGS (3)
  1. PROGRAF [Suspect]
     Indication: RENAL TRANSPLANT
  2. CYCLOSPORINE [Suspect]
     Indication: RENAL TRANSPLANT
  3. PREDNISOLONE [Suspect]
     Indication: RENAL TRANSPLANT

REACTIONS (15)
  - BRAIN ABSCESS [None]
  - CHOROIDITIS [None]
  - CYTOMEGALOVIRUS INFECTION [None]
  - EYE PAIN [None]
  - GENERAL PHYSICAL HEALTH DETERIORATION [None]
  - MASS [None]
  - MUSCULAR WEAKNESS [None]
  - NOCARDIA SEPSIS [None]
  - NOCARDIOSIS [None]
  - OCULAR HYPERAEMIA [None]
  - PULMONARY MASS [None]
  - RETINAL DETACHMENT [None]
  - RETINAL HAEMORRHAGE [None]
  - VISUAL ACUITY REDUCED [None]
  - VITREOUS DISORDER [None]
